FAERS Safety Report 13437952 (Version 1)
Quarter: 2017Q2

REPORT INFORMATION
  Report Type: Spontaneous
  Country: US (occurrence: US)
  Receive Date: 20170412
  Receipt Date: 20170412
  Transmission Date: 20170830
  Serious: No
  Sender: FDA-Public Use
  Company Number: US-SA-2016SA088088

PATIENT
  Sex: Female

DRUGS (2)
  1. SUDAFED [Concomitant]
     Active Substance: PSEUDOEPHEDRINE HYDROCHLORIDE
     Route: 065
  2. ALLEGRA [Suspect]
     Active Substance: FEXOFENADINE HYDROCHLORIDE
     Dosage: DOSAGE FORM: ALLEGRA GELCAPS
     Route: 065

REACTIONS (2)
  - Limb injury [Unknown]
  - Product packaging issue [Unknown]
